FAERS Safety Report 7259495-0 (Version None)
Quarter: 2011Q1

REPORT INFORMATION
  Report Type: 
  Country: None (occurrence: None)
  Receive Date: 20110130
  Receipt Date: 20100910
  Transmission Date: 20110831
  Serious: No
  Sender: FDA-Public Use
  Company Number: US-ABBOTT-10P-163-0670997-00

PATIENT
  Sex: Female
  Weight: 56.75 kg

DRUGS (2)
  1. METHOTREXATE [Concomitant]
     Indication: RHEUMATOID ARTHRITIS
     Dosage: START DATE TEXT: SEP 2010
     Dates: start: 20100301, end: 20100801
  2. HUMIRA [Suspect]
     Indication: RHEUMATOID ARTHRITIS
     Dosage: START DATE TEXT: SEP 2010
     Dates: start: 20100801, end: 20100801

REACTIONS (3)
  - BRONCHITIS [None]
  - RESTLESS LEGS SYNDROME [None]
  - INSOMNIA [None]
